FAERS Safety Report 15857307 (Version 1)
Quarter: 2018Q4

REPORT INFORMATION
  Report Type: Spontaneous
  Country: US (occurrence: US)
  Receive Date: 20181226
  Receipt Date: 20181226
  Transmission Date: 20190205
  Serious: No
  Sender: FDA-Public Use
  Company Number: None

PATIENT
  Age: 60 Year
  Sex: Female

DRUGS (2)
  1. EXEMESTANE. [Suspect]
     Active Substance: EXEMESTANE
     Route: 047
     Dates: start: 201706
  2. IBRANCE [Concomitant]
     Active Substance: PALBOCICLIB

REACTIONS (1)
  - Trigger finger [None]

NARRATIVE: CASE EVENT DATE: 20181226
